FAERS Safety Report 4325671-X (Version None)
Quarter: 2004Q1

REPORT INFORMATION
  Report Type: 
  Country: None (occurrence: None)
  Receive Date: 20040324
  Receipt Date: 20040309
  Transmission Date: 20041129
  Serious: Yes (Other)
  Sender: FDA-Public Use
  Company Number: S04-USA-01402-01

PATIENT
  Age: 51 Year
  Sex: Female

DRUGS (6)
  1. AEROBID [Suspect]
     Indication: ASTHMA
     Dosage: 2 PUFF BID IH
     Route: 055
     Dates: start: 20000101
  2. ALBUTEROL [Concomitant]
  3. XANAX [Concomitant]
  4. HYDROCHLOROTHIAZIDE [Concomitant]
  5. CELEBREX [Concomitant]
  6. TOPROL-XL [Concomitant]

REACTIONS (3)
  - APHONIA [None]
  - ORAL FUNGAL INFECTION [None]
  - VOCAL CORD DISORDER [None]
